FAERS Safety Report 7878852-2 (Version None)
Quarter: 2011Q4

REPORT INFORMATION
  Report Type: 
  Country: None (occurrence: None)
  Receive Date: 20111101
  Receipt Date: 20111020
  Transmission Date: 20120403
  Serious: Yes (Hospitalization, Other)
  Sender: FDA-Public Use
  Company Number: US-ASTRAZENECA-2011SE63609

PATIENT
  Age: 52 Year
  Sex: Female

DRUGS (1)
  1. SYMBICORT [Suspect]
     Route: 055

REACTIONS (4)
  - JOINT RANGE OF MOTION DECREASED [None]
  - OSTEOARTHRITIS [None]
  - FOOT DEFORMITY [None]
  - CHRONIC OBSTRUCTIVE PULMONARY DISEASE [None]
